FAERS Safety Report 6743290-2 (Version None)
Quarter: 2010Q2

REPORT INFORMATION
  Report Type: 
  Country: None (occurrence: None)
  Receive Date: 20100525
  Receipt Date: 20100511
  Transmission Date: 20101027
  Serious: Yes (Hospitalization)
  Sender: FDA-Public Use
  Company Number: CO-000243

PATIENT
  Sex: Male
  Weight: 25 kg

DRUGS (4)
  1. NAGLAZYME [Suspect]
     Indication: MUCOPOLYSACCHARIDOSIS VI
     Dosage: 25 MG 1X/WEEK INTRAVENOUS DRIP
     Route: 041
     Dates: start: 20090402, end: 20100510
  2. PREGABALIN [Concomitant]
  3. HYDROCORTISONIE [Concomitant]
  4. LORATADINE [Concomitant]

REACTIONS (9)
  - CHILLS [None]
  - HYPERHIDROSIS [None]
  - INFUSION RELATED REACTION [None]
  - LUNG INFECTION PSEUDOMONAL [None]
  - OXYGEN SATURATION DECREASED [None]
  - PULMONARY OEDEMA [None]
  - RASH [None]
  - RESPIRATORY FAILURE [None]
  - TACHYCARDIA [None]
